FAERS Safety Report 8228712-2 (Version None)
Quarter: 2012Q1

REPORT INFORMATION
  Report Type: 
  Country: None (occurrence: None)
  Receive Date: 20120322
  Receipt Date: 20120319
  Transmission Date: 20120608
  Serious: No
  Sender: FDA-Public Use
  Company Number: US-PFIZER INC-2012072532

PATIENT
  Age: 67 Year
  Sex: Female
  Weight: 56.689 kg

DRUGS (8)
  1. HYDROCODONE BITARTRATE [Suspect]
     Dosage: UNK
  2. VALIUM [Concomitant]
     Dosage: 2 OR 4 MG, AS NEEDED
  3. ACETYLSALICYLIC ACID [Concomitant]
     Dosage: 81 MG, DAILY
  4. ASPERCREME [Concomitant]
     Dosage: UNK
  5. TYLENOL [Concomitant]
     Dosage: UNK
  6. LIPITOR [Concomitant]
     Indication: BLOOD CHOLESTEROL ABNORMAL
     Dosage: UNK
  7. CELEBREX [Suspect]
     Indication: NEURALGIA
     Dosage: 100 MG, 2X/DAY
     Dates: start: 20110101
  8. LYRICA [Suspect]
     Indication: PAIN
     Dosage: 25 MG, UNK

REACTIONS (10)
  - DRUG INEFFECTIVE [None]
  - GAIT DISTURBANCE [None]
  - EAR DISORDER [None]
  - PANIC ATTACK [None]
  - POOR QUALITY SLEEP [None]
  - STOMATITIS [None]
  - NEURALGIA [None]
  - HEART RATE INCREASED [None]
  - FEELING ABNORMAL [None]
  - PAIN [None]
